FAERS Safety Report 24651385 (Version 1)
Quarter: 2024Q4

REPORT INFORMATION
  Report Type: Spontaneous
  Country: US (occurrence: US)
  Receive Date: 20241122
  Receipt Date: 20241122
  Transmission Date: 20250114
  Serious: No
  Sender: ALVOGEN
  Company Number: None

PATIENT
  Sex: Female

DRUGS (2)
  1. TERIPARATIDE [Suspect]
     Active Substance: TERIPARATIDE
     Indication: Osteoporosis
     Dosage: STRENGTH: 250 MCG/ML (620MCG-2.48ML) ONCE DAILY; ONGOING?EXPIRATION DATE: 31-MAR-2025
     Route: 058
     Dates: start: 20240502, end: 20240527
  2. TERIPARATIDE [Suspect]
     Active Substance: TERIPARATIDE
     Indication: Osteoporosis
     Dosage: STRENGTH: 250 MCG/ML (620MCG-2.48ML); ONCE DAILY, ONGOING?EXPIRATION DATE: 31-OCT-2024
     Route: 058
     Dates: start: 202308

REACTIONS (7)
  - Headache [Unknown]
  - Device malfunction [Unknown]
  - Device defective [Unknown]
  - Device operational issue [Unknown]
  - Product dose omission issue [Unknown]
  - Device issue [Unknown]
  - Product packaging quantity issue [Unknown]

NARRATIVE: CASE EVENT DATE: 20240107
